FAERS Safety Report 4448825-0 (Version None)
Quarter: 2004Q3

REPORT INFORMATION
  Report Type: 
  Country: None (occurrence: None)
  Receive Date: 20040909
  Receipt Date: 20040826
  Transmission Date: 20050211
  Serious: Yes (Death, Hospitalization)
  Sender: FDA-Public Use
  Company Number: 208643

PATIENT
  Age: 60 Year
  Sex: Female

DRUGS (3)
  1. AVASTIN [Suspect]
     Indication: COLORECTAL CANCER METASTATIC
     Dosage: 300 MG, Q2W, INTRAVENOUS
     Route: 042
     Dates: start: 20040803, end: 20040803
  2. ZOLOFT [Concomitant]
  3. PREVACID [Concomitant]

REACTIONS (7)
  - ATELECTASIS [None]
  - BLOOD GLUCOSE INCREASED [None]
  - BLOOD SODIUM DECREASED [None]
  - BONE MARROW DEPRESSION [None]
  - HAEMORRHAGE INTRACRANIAL [None]
  - IDIOPATHIC THROMBOCYTOPENIC PURPURA [None]
  - MALIGNANT NEOPLASM PROGRESSION [None]
